FAERS Safety Report 5098125-3 (Version None)
Quarter: 2006Q3

REPORT INFORMATION
  Report Type: 
  Country: None (occurrence: None)
  Receive Date: 20060906
  Receipt Date: 20060420
  Transmission Date: 20061208
  Serious: No
  Sender: FDA-Public Use
  Company Number: US-GLAXOSMITHKLINE-A0602644A

PATIENT
  Age: 41 Year
  Sex: Female

DRUGS (3)
  1. REQUIP [Suspect]
     Indication: RESTLESS LEGS SYNDROME
     Dosage: 1MG AT NIGHT
     Route: 048
     Dates: start: 20060407, end: 20060418
  2. TOPAMAX [Suspect]
     Indication: MIGRAINE PROPHYLAXIS
     Dosage: 75MG AT NIGHT
     Route: 048
     Dates: start: 20051101
  3. RELPAX [Concomitant]

REACTIONS (13)
  - BEDRIDDEN [None]
  - DIZZINESS [None]
  - FEELING ABNORMAL [None]
  - FEELING HOT [None]
  - HEADACHE [None]
  - HYPOAESTHESIA [None]
  - ILL-DEFINED DISORDER [None]
  - MIDDLE INSOMNIA [None]
  - MUSCLE SPASMS [None]
  - NAUSEA [None]
  - NIGHTMARE [None]
  - PAIN IN EXTREMITY [None]
  - VERTIGO [None]
